FAERS Safety Report 13821500 (Version 1)
Quarter: 2017Q3

REPORT INFORMATION
  Report Type: Spontaneous
  Country: US (occurrence: US)
  Receive Date: 20170801
  Receipt Date: 20170801
  Transmission Date: 20171127
  Serious: Yes (Other)
  Sender: FDA-Public Use
  Company Number: US-SUNOVION-2017SUN000058

PATIENT

DRUGS (6)
  1. LATUDA [Suspect]
     Active Substance: LURASIDONE HYDROCHLORIDE
     Dosage: UNK
     Route: 048
  2. XANAX [Concomitant]
     Active Substance: ALPRAZOLAM
  3. LUNESTA [Concomitant]
     Active Substance: ESZOPICLONE
  4. WELLBUTRIN [Concomitant]
     Active Substance: BUPROPION HYDROCHLORIDE
  5. GEODON [Suspect]
     Active Substance: ZIPRASIDONE HYDROCHLORIDE\ZIPRASIDONE MESYLATE
  6. BENADRYL [Concomitant]
     Active Substance: DIPHENHYDRAMINE HYDROCHLORIDE

REACTIONS (13)
  - Weight increased [Unknown]
  - Sexual dysfunction [Unknown]
  - Drug withdrawal syndrome [Unknown]
  - Drug ineffective [Unknown]
  - Insomnia [Unknown]
  - Feeling abnormal [Unknown]
  - Hallucination [Unknown]
  - Tremor [Unknown]
  - Malaise [Unknown]
  - Asthenia [Unknown]
  - Psychotic disorder [Unknown]
  - Paranoia [Unknown]
  - Anxiety [Unknown]
